FAERS Safety Report 13254322 (Version 7)
Quarter: 2018Q3

REPORT INFORMATION
  Report Type: Report from Study
  Country: DE (occurrence: DE)
  Receive Date: 20170221
  Receipt Date: 20180925
  Transmission Date: 20181010
  Serious: Yes (Hospitalization, Other)
  Sender: FDA-Public Use
  Company Number: DE-ROCHE-1888435

PATIENT
  Sex: Male

DRUGS (18)
  1. ASPIRIN. [Concomitant]
     Active Substance: ASPIRIN
  2. HCTZ [Concomitant]
     Active Substance: HYDROCHLOROTHIAZIDE
  3. TRAMADOL. [Concomitant]
     Active Substance: TRAMADOL
  4. METAMIZOL [Concomitant]
     Active Substance: METAMIZOLE SODIUM
  5. RITUXIMAB. [Suspect]
     Active Substance: RITUXIMAB
     Route: 065
     Dates: start: 201604, end: 20170404
  6. CANDESARTAN. [Concomitant]
     Active Substance: CANDESARTAN
  7. DICLOFENAC [Concomitant]
     Active Substance: DICLOFENAC
  8. ACC LONG [Concomitant]
     Active Substance: ACETYLCYSTEINE
  9. RITUXIMAB. [Suspect]
     Active Substance: RITUXIMAB
     Indication: RHEUMATOID ARTHRITIS
     Route: 065
     Dates: start: 201304
  10. FUROSEMID [Concomitant]
     Active Substance: FUROSEMIDE
  11. PANTOPRAZOL [Concomitant]
     Active Substance: PANTOPRAZOLE SODIUM
  12. CHININSULFAT [Concomitant]
  13. FRAXIPARIN [Concomitant]
     Active Substance: NADROPARIN CALCIUM
  14. AMLODIPIN [Concomitant]
     Active Substance: AMLODIPINE BESYLATE
  15. FERRO SANOL [Concomitant]
     Active Substance: FERROUS GLYCINE SULFATE
  16. LIMPTAR [Concomitant]
     Active Substance: AMINOPHYLLINE\QUININE SULFATE
  17. PREDISOLONE OR COMPARATOR [Concomitant]
  18. SALBUTAMOL [Concomitant]
     Active Substance: ALBUTEROL

REACTIONS (11)
  - Impaired healing [Unknown]
  - Pneumonia [Recovered/Resolved]
  - Urinary tract infection [Unknown]
  - Urinary tract stoma complication [Recovered/Resolved]
  - Hydronephrosis [Unknown]
  - Nephrostomy [Unknown]
  - Device related infection [Recovered/Resolved]
  - Actinic keratosis [Unknown]
  - Pneumonia escherichia [Unknown]
  - Leukocytosis [Unknown]
  - Urinary fistula [Unknown]

NARRATIVE: CASE EVENT DATE: 20150215
